FAERS Safety Report 20733421 (Version 2)
Quarter: 2025Q2

REPORT INFORMATION
  Report Type: Spontaneous
  Country: US (occurrence: US)
  Receive Date: 20220421
  Receipt Date: 20250529
  Transmission Date: 20250716
  Serious: No
  Sender: CIPLA
  Company Number: US-CIPLA LTD.-2022US00395

PATIENT

DRUGS (2)
  1. ALBUTEROL [Suspect]
     Active Substance: ALBUTEROL
     Indication: COVID-19
     Route: 065
  2. ALBUTEROL [Suspect]
     Active Substance: ALBUTEROL
     Route: 065
     Dates: start: 20210811

REACTIONS (3)
  - Device breakage [Unknown]
  - Off label use [Unknown]
  - Product use in unapproved indication [Unknown]
